FAERS Safety Report 8588870 (Version 2)
Quarter: 2012Q4

REPORT INFORMATION
  Report Type: Report from Study
  Country: DE (occurrence: DE)
  Receive Date: 20120531
  Receipt Date: 20120925
  Transmission Date: 20130627
  Serious: Yes (Hospitalization)
  Sender: FDA-Public Use
  Company Number: DE-PFIZER INC-2012126523

PATIENT
  Age: 56 Year
  Sex: Male
  Weight: 69 kg

DRUGS (14)
  1. ENBREL [Suspect]
     Indication: RHEUMATOID ARTHRITIS
     Dosage: 50 mg, once weekly
     Route: 058
     Dates: start: 20110524
  2. CELEBREX [Suspect]
     Indication: RHEUMATOID ARTHRITIS
     Dosage: 200 mg daily
     Route: 048
     Dates: start: 20110824, end: 20120301
  3. IMUREK [Concomitant]
     Indication: RHEUMATOID ARTHRITIS
     Dosage: 50 mg, 3x/day
     Route: 048
     Dates: start: 200912
  4. SYNTESTAN [Concomitant]
     Indication: RHEUMATOID ARTHRITIS
     Dosage: 12.5 mg, 1x/day
     Route: 048
     Dates: start: 201003
  5. SYNTESTAN [Concomitant]
     Dosage: 10 mg, 1x/day
     Route: 048
     Dates: start: 20110608, end: 20110621
  6. SYNTESTAN [Concomitant]
     Dosage: 7.5 mg, 1x/day
     Route: 048
     Dates: start: 20110622, end: 20110705
  7. SYNTESTAN [Concomitant]
     Dosage: 5 mg, 1x/day
     Route: 048
     Dates: start: 20110706, end: 20120209
  8. ISOZID [Concomitant]
     Indication: ANTIBIOTIC PROPHYLAXIS
     Dosage: 300 mg, 1x/day
     Route: 048
     Dates: start: 201105, end: 20120523
  9. SITAGLIPTIN [Concomitant]
     Indication: DIABETES MELLITUS
     Dosage: 100 mg, 1x/day
     Route: 048
     Dates: start: 201005
  10. PANTOPRAZOLE [Concomitant]
     Indication: GASTRIC DISORDER
     Dosage: 40 mg, 1x/day
     Route: 048
     Dates: start: 201104
  11. CITALOPRAM [Concomitant]
     Indication: DEPRESSION
     Dosage: 20 mg, 1x/day
     Route: 048
     Dates: start: 201104
  12. DENOSUMAB [Concomitant]
     Indication: OSTEOPOROSIS
     Dosage: 60 mg, UNK
     Dates: start: 20110428
  13. OXYCODONE HYDROCHLORIDE [Concomitant]
     Indication: FRACTURE PAIN
     Dosage: 20 mg, 3x/day
     Route: 048
     Dates: start: 201105
  14. CALCIUM CARBONATE/COLECALCIFEROL [Concomitant]
     Indication: OSTEOPOROSIS
     Dosage: UNK
     Dates: start: 200809

REACTIONS (1)
  - Helicobacter gastritis [Recovered/Resolved]
